FAERS Safety Report 10070053 (Version 1)
Quarter: 2014Q2

REPORT INFORMATION
  Report Type: Spontaneous
  Country: GB (occurrence: None)
  Receive Date: 20140408
  Receipt Date: 20140408
  Transmission Date: 20141212
  Serious: Yes (Other)
  Sender: FDA-Public Use
  Company Number: AUR-APL-2014-04166

PATIENT
  Age: 68 Year
  Sex: Female
  Weight: 55.33 kg

DRUGS (2)
  1. ETORICOXIB (ETORICOXIB) [Concomitant]
     Indication: OSTEOPOROSIS
     Route: 048
     Dates: start: 20140122, end: 20140122
  2. ALENDRONIC ACID (ALENDRONATE ACID) [Suspect]
     Indication: OSTEOPOROSIS
     Route: 048
     Dates: start: 20140122, end: 20140122

REACTIONS (3)
  - Dyspepsia [None]
  - Influenza [None]
  - Muscle spasms [None]
